FAERS Safety Report 8029424-0 (Version None)
Quarter: 2012Q1

REPORT INFORMATION
  Report Type: 
  Country: None (occurrence: None)
  Receive Date: 20120106
  Receipt Date: 20120103
  Transmission Date: 20120608
  Serious: Yes (Other)
  Sender: FDA-Public Use
  Company Number: US-AMGEN-USASP2012000327

PATIENT
  Age: 67 Year
  Sex: Female
  Weight: 100.68 kg

DRUGS (4)
  1. HUMIRA [Suspect]
     Indication: PSORIATIC ARTHROPATHY
     Dosage: 40 MG, Q2WK
     Route: 058
     Dates: start: 20111026
  2. ENBREL [Suspect]
     Dosage: UNK
     Dates: start: 20090101, end: 20110501
  3. ENBREL [Suspect]
     Indication: PSORIATIC ARTHROPATHY
     Dosage: UNK
     Dates: start: 20110701, end: 20111001
  4. AZATHIOPRINE [Concomitant]
     Indication: PSORIATIC ARTHROPATHY
     Dosage: UNK
     Dates: start: 20100101

REACTIONS (5)
  - PROCTITIS ULCERATIVE [None]
  - COLONIC POLYP [None]
  - DIARRHOEA [None]
  - CHOLECYSTITIS INFECTIVE [None]
  - RENAL CANCER [None]
